FAERS Safety Report 6558573-9 (Version None)
Quarter: 2010Q1

REPORT INFORMATION
  Report Type: 
  Country: None (occurrence: None)
  Receive Date: 20100129
  Receipt Date: 20091029
  Transmission Date: 20100710
  Serious: No
  Sender: FDA-Public Use
  Company Number: A0814839A

PATIENT

DRUGS (2)
  1. MEPRON [Suspect]
     Route: 065
  2. ZITHROMAX [Suspect]
     Route: 065

REACTIONS (2)
  - CONDITION AGGRAVATED [None]
  - MALAISE [None]
